FAERS Safety Report 6015205-6 (Version None)
Quarter: 2008Q4

REPORT INFORMATION
  Report Type: 
  Country: None (occurrence: None)
  Receive Date: 20081218
  Receipt Date: 20081202
  Transmission Date: 20090506
  Serious: Yes (Hospitalization)
  Sender: FDA-Public Use
  Company Number: KV200800807

PATIENT
  Age: 53 Year
  Sex: Male
  Weight: 66.7 kg

DRUGS (8)
  1. ISOSORBIDE MONONITRATE [Suspect]
     Indication: MYOCARDIAL INFARCTION
     Dosage: 30 MG, QD, ORAL
     Route: 048
     Dates: start: 20070101, end: 20080425
  2. LISINOPRIL [Concomitant]
  3. PROTONIX /01263201/ (PANTOPRAZOLE) [Concomitant]
  4. METOPROLOL TARTRATE [Concomitant]
  5. SIMVASTATIN [Concomitant]
  6. ASPIRIN [Concomitant]
  7. PLAVIX [Concomitant]
  8. SERTRALINE [Concomitant]

REACTIONS (6)
  - CONTUSION [None]
  - FALL [None]
  - JOINT SWELLING [None]
  - LOSS OF CONSCIOUSNESS [None]
  - NAUSEA [None]
  - PRODUCT QUALITY ISSUE [None]
